FAERS Safety Report 19247798 (Version 1)
Quarter: 2021Q2

REPORT INFORMATION
  Report Type: Other
  Country: AU (occurrence: AU)
  Receive Date: 20210512
  Receipt Date: 20210512
  Transmission Date: 20210717
  Serious: Yes (Other)
  Sender: FDA-Public Use
  Company Number: AU-ROCHE-2829172

PATIENT
  Age: 56 Year
  Sex: Female

DRUGS (1)
  1. OCRELIZUMAB. [Suspect]
     Active Substance: OCRELIZUMAB
     Indication: PRIMARY PROGRESSIVE MULTIPLE SCLEROSIS
     Dosage: 3 INFUSIONS
     Route: 042

REACTIONS (3)
  - Oesophagitis [Recovered/Resolved]
  - Crohn^s disease [Unknown]
  - Colitis [Recovered/Resolved]
